FAERS Safety Report 13841072 (Version 1)
Quarter: 2017Q3

REPORT INFORMATION
  Report Type: Spontaneous
  Country: US (occurrence: US)
  Receive Date: 20170807
  Receipt Date: 20170807
  Transmission Date: 20171127
  Serious: Yes (Other)
  Sender: FDA-Public Use
  Company Number: US-MALLINCKRODT-T201703151

PATIENT
  Sex: Female

DRUGS (3)
  1. H.P. ACTHAR [Suspect]
     Active Substance: CORTICOTROPIN
     Dosage: 80 UNITS, EVERY 72 HOURS
     Route: 058
     Dates: start: 20170517
  2. H.P. ACTHAR [Suspect]
     Active Substance: CORTICOTROPIN
     Indication: IRITIS
     Dosage: 80 UNITS, EVERY 72 HOURS
     Route: 065
     Dates: start: 20170508
  3. H.P. ACTHAR [Suspect]
     Active Substance: CORTICOTROPIN
     Indication: COMPLEMENT DEFICIENCY DISEASE
     Dosage: 60 UNITS, EVERY 72 HOURS
     Route: 065
     Dates: start: 2017, end: 20170721

REACTIONS (12)
  - Sleep disorder [Unknown]
  - Nausea [Unknown]
  - Menorrhagia [Unknown]
  - Colitis [Recovered/Resolved]
  - Anxiety [Unknown]
  - Impaired healing [Unknown]
  - Lipoedema [Unknown]
  - Weight increased [Unknown]
  - Swelling face [Unknown]
  - Acne [Unknown]
  - Hormone level abnormal [Unknown]
  - Dry skin [Unknown]
